FAERS Safety Report 7651415-X (Version None)
Quarter: 2011Q3

REPORT INFORMATION
  Report Type: 
  Country: None (occurrence: None)
  Receive Date: 20110802
  Receipt Date: 20110722
  Transmission Date: 20111222
  Serious: Yes (Hospitalization, Other)
  Sender: FDA-Public Use
  Company Number: PHEH2010US01734

PATIENT
  Sex: Female

DRUGS (7)
  1. COUMADIN [Concomitant]
     Dosage: 10.5 MG, 3MG AM, 7.5MG PM
  2. EXJADE [Suspect]
     Dosage: 1250 MG, QD
     Route: 048
  3. EXJADE [Suspect]
     Indication: IRON OVERLOAD
     Dosage: 1500 MG, QD
     Route: 048
     Dates: start: 20090201
  4. LORTAB [Concomitant]
     Dosage: 10 MG, UNK
  5. DILAUDID [Concomitant]
     Dosage: 4 MG, PRN
     Dates: start: 20091201
  6. EXJADE [Suspect]
     Dosage: 2500 MG, QD
     Route: 048
  7. FOLIC ACID [Concomitant]
     Dosage: 1 MG, UNK

REACTIONS (8)
  - DYSURIA [None]
  - URINARY TRACT INFECTION [None]
  - BACK PAIN [None]
  - PAIN [None]
  - SICKLE CELL ANAEMIA WITH CRISIS [None]
  - PAIN IN EXTREMITY [None]
  - MALAISE [None]
  - HYPOKALAEMIA [None]
